FAERS Safety Report 8143637-9 (Version None)
Quarter: 2012Q1

REPORT INFORMATION
  Report Type: 
  Country: None (occurrence: None)
  Receive Date: 20120103
  Receipt Date: 20110920
  Transmission Date: 20120608
  Serious: No
  Sender: FDA-Public Use
  Company Number: AE-2011-001684

PATIENT
  Sex: Male
  Weight: 98.4306 kg

DRUGS (5)
  1. PEG-INTRON [Concomitant]
  2. RIBAVIRIN [Concomitant]
  3. COUMADIN [Concomitant]
  4. INCIVEK [Suspect]
     Dosage: 2250 MG (750 MG, 3 IN 1 D), ORAL
     Route: 048
     Dates: start: 20110812
  5. SPIRONOLACTONE [Concomitant]

REACTIONS (5)
  - VOMITING [None]
  - FATIGUE [None]
  - NAUSEA [None]
  - TOOTH LOSS [None]
  - RETCHING [None]
